FAERS Safety Report 6959295-2 (Version None)
Quarter: 2010Q3

REPORT INFORMATION
  Report Type: 
  Country: None (occurrence: None)
  Receive Date: 20100831
  Receipt Date: 20100727
  Transmission Date: 20110219
  Serious: No
  Sender: FDA-Public Use
  Company Number: US-PFIZER INC-2010094518

PATIENT
  Sex: Female
  Weight: 49.887 kg

DRUGS (2)
  1. CLINDAMYCIN PHOSPHATE [Suspect]
     Indication: JOINT ARTHROPLASTY
     Dosage: 600 MG, UNK
     Route: 048
  2. CLINDAMYCIN PHOSPHATE [Suspect]
     Dosage: 150 MG, UNK
     Route: 048

REACTIONS (4)
  - DIARRHOEA [None]
  - FEELING ABNORMAL [None]
  - MALAISE [None]
  - NAUSEA [None]
